FAERS Safety Report 11796733 (Version 1)
Quarter: 2015Q4

REPORT INFORMATION
  Report Type: Report from Study
  Country: US (occurrence: US)
  Receive Date: 20151203
  Receipt Date: 20151203
  Transmission Date: 20160305
  Serious: Yes (Hospitalization, Other)
  Sender: FDA-Public Use
  Company Number: US-BAYER-2014-142304

PATIENT
  Age: 80 Year
  Sex: Male
  Weight: 98.41 kg

DRUGS (11)
  1. ADEMPAS [Suspect]
     Active Substance: RIOCIGUAT
     Indication: COR PULMONALE CHRONIC
     Dosage: 1.5 MG, TID
     Route: 048
  2. ADEMPAS [Suspect]
     Active Substance: RIOCIGUAT
     Indication: COR PULMONALE CHRONIC
     Dosage: 2 MG, TID
     Route: 048
  3. ADEMPAS [Suspect]
     Active Substance: RIOCIGUAT
     Indication: COR PULMONALE CHRONIC
     Dosage: 2.5 MG, TID
     Route: 048
  4. ADEMPAS [Suspect]
     Active Substance: RIOCIGUAT
     Indication: COR PULMONALE CHRONIC
     Dosage: 1 MG, TID
     Route: 048
     Dates: start: 20140915
  5. ADEMPAS [Suspect]
     Active Substance: RIOCIGUAT
     Indication: COR PULMONALE CHRONIC
     Dosage: 2.5 MG, TID
     Route: 048
  6. ADEMPAS [Suspect]
     Active Substance: RIOCIGUAT
     Indication: COR PULMONALE CHRONIC
     Dosage: 1.5 MG, TID
     Route: 048
  7. ADEMPAS [Suspect]
     Active Substance: RIOCIGUAT
     Indication: COR PULMONALE CHRONIC
     Dosage: 0.5 MG, TID
     Dates: start: 20140912
  8. ADEMPAS [Suspect]
     Active Substance: RIOCIGUAT
     Indication: COR PULMONALE CHRONIC
     Dosage: 0.5 MG, TID, FOR TWO WEEKS
  9. ADEMPAS [Suspect]
     Active Substance: RIOCIGUAT
     Indication: COR PULMONALE CHRONIC
     Dosage: 2.5 MG, TID (LAST SHIPPED 17-SEP-2015)
  10. COUMADIN [Concomitant]
     Active Substance: WARFARIN SODIUM
  11. ADEMPAS [Suspect]
     Active Substance: RIOCIGUAT
     Indication: PULMONARY HYPERTENSION
     Dosage: 0.5 MG, TID
     Route: 048
     Dates: start: 20140915

REACTIONS (26)
  - Oedema peripheral [None]
  - Hypokalaemia [Unknown]
  - Abdominal discomfort [None]
  - Haemoptysis [None]
  - Fatigue [Unknown]
  - Peripheral swelling [None]
  - Cellulitis [Unknown]
  - Myocardial infarction [None]
  - Cholangiocarcinoma [None]
  - Dyspnoea exertional [Unknown]
  - Spinal laminectomy [Unknown]
  - Metastatic gastric cancer [None]
  - Metastasis [None]
  - Peripheral swelling [Unknown]
  - Gout [Unknown]
  - Constipation [None]
  - Musculoskeletal pain [None]
  - Chest discomfort [None]
  - Surgery [None]
  - Hospitalisation [Unknown]
  - Pain in extremity [Unknown]
  - Insomnia [None]
  - Flatulence [None]
  - Atrial fibrillation [None]
  - Lymphoma [None]
  - Abdominal pain upper [None]

NARRATIVE: CASE EVENT DATE: 201411
